FAERS Safety Report 10256394 (Version 1)
Quarter: 2014Q2

REPORT INFORMATION
  Report Type: Spontaneous
  Country: US (occurrence: US)
  Receive Date: 20140624
  Receipt Date: 20140624
  Transmission Date: 20141212
  Serious: No
  Sender: FDA-Public Use
  Company Number: US-ZOGENIX, INC.-2012ZX000152

PATIENT
  Age: 54 Year
  Sex: Female
  Weight: 82.63 kg

DRUGS (5)
  1. SUMAVEL DOSEPRO [Suspect]
     Indication: MIGRAINE
     Dates: start: 20120416
  2. ATENOLOL [Concomitant]
     Indication: MIGRAINE PROPHYLAXIS
     Route: 048
  3. NORTRIPTYLINE [Concomitant]
     Indication: PRODUCT USED FOR UNKNOWN INDICATION
     Route: 048
  4. BENADRYL [Concomitant]
     Indication: PRURITUS
     Route: 048
  5. ACIPHEX [Concomitant]
     Indication: GASTROOESOPHAGEAL REFLUX DISEASE

REACTIONS (6)
  - Chills [Recovered/Resolved]
  - Pyrexia [Recovered/Resolved]
  - Dizziness [Recovered/Resolved]
  - Paraesthesia [Recovered/Resolved]
  - Feeling abnormal [Recovered/Resolved]
  - Drug effect incomplete [Unknown]
